FAERS Safety Report 9133404 (Version 1)
Quarter: 2013Q1

REPORT INFORMATION
  Report Type: Spontaneous
  Country: CA (occurrence: CA)
  Receive Date: 20130301
  Receipt Date: 20130301
  Transmission Date: 20140127
  Serious: Yes (Other)
  Sender: FDA-Public Use
  Company Number: CA-ROCHE-1196741

PATIENT
  Sex: Female
  Weight: 81.6 kg

DRUGS (2)
  1. HERCEPTIN [Suspect]
     Indication: BREAST CANCER
     Route: 042
     Dates: start: 2009, end: 2010
  2. ELTROXIN [Concomitant]

REACTIONS (1)
  - Cardiac disorder [Unknown]
